FAERS Safety Report 19014493 (Version 2)
Quarter: 2021Q2

REPORT INFORMATION
  Report Type: Report from Study
  Country: US (occurrence: US)
  Receive Date: 20210317
  Receipt Date: 20210513
  Transmission Date: 20210717
  Serious: No
  Sender: FDA-Public Use
  Company Number: US-ACADIA PHARMACEUTICALS INC.-ACA-2021-PIM-000718

PATIENT
  Age: 62 Year
  Sex: Male

DRUGS (8)
  1. NUPLAZID [Suspect]
     Active Substance: PIMAVANSERIN TARTRATE
     Indication: PARKINSON^S DISEASE
     Dosage: 34 MILLIGRAM, QD
     Route: 048
     Dates: start: 20200804
  2. NOURIANZ [Suspect]
     Active Substance: ISTRADEFYLLINE
     Dosage: 40 MILLIGRAM
     Dates: start: 20201009, end: 20210218
  3. CARBIDOPA/LEVODOPA [Concomitant]
     Active Substance: CARBIDOPA\LEVODOPA
     Dosage: UNK
     Dates: start: 2016
  4. RASAGILINE. [Concomitant]
     Active Substance: RASAGILINE
     Dosage: UNK
     Dates: start: 2016
  5. MEMANTINE. [Concomitant]
     Active Substance: MEMANTINE
     Dosage: 10 MILLIGRAM
     Dates: start: 2019
  6. NOURIANZ [Suspect]
     Active Substance: ISTRADEFYLLINE
     Dosage: 40 MILLIGRAM
     Dates: start: 20210220
  7. NOURIANZ [Suspect]
     Active Substance: ISTRADEFYLLINE
     Indication: THERAPEUTIC RESPONSE SHORTENED
     Dosage: 40 MILLIGRAM
     Route: 065
     Dates: start: 20200511, end: 20200928
  8. RIVASTIGMINE. [Concomitant]
     Active Substance: RIVASTIGMINE
     Dosage: 4.5 MG
     Route: 048

REACTIONS (1)
  - Ill-defined disorder [Recovered/Resolved]

NARRATIVE: CASE EVENT DATE: 20200929
